FAERS Safety Report 9321412 (Version 2)
Quarter: 2013Q2

REPORT INFORMATION
  Report Type: Spontaneous
  Country: FR (occurrence: FR)
  Receive Date: 20130531
  Receipt Date: 20130626
  Transmission Date: 20140414
  Serious: Yes (Hospitalization)
  Sender: FDA-Public Use
  Company Number: FR-PFIZER INC-2013162677

PATIENT
  Age: 75 Year
  Sex: Male

DRUGS (27)
  1. TAZOCILLINE [Suspect]
     Indication: SEPTIC SHOCK
     Dosage: 8 G DAILY
     Route: 042
     Dates: start: 20130406, end: 20130406
  2. TAZOCILLINE [Suspect]
     Indication: PERITONITIS
     Dosage: 12 G DAILY
     Route: 042
     Dates: start: 20120407, end: 20130412
  3. TAZOCILLINE [Suspect]
     Dosage: 8 G DAILY
     Route: 042
     Dates: start: 20130413, end: 20130415
  4. INEXIUM [Concomitant]
     Dosage: 40 MG, 1X/DAY
     Route: 048
     Dates: start: 20130406
  5. ACUPAN [Concomitant]
     Dosage: 65 MG, 1X/DAY
     Route: 042
     Dates: start: 20130406, end: 20130406
  6. ACUPAN [Concomitant]
     Dosage: 45 MG, 1X/DAY
     Route: 042
     Dates: start: 20130407, end: 20130407
  7. ACUPAN [Concomitant]
     Dosage: 40 MG, 1X/DAY
     Route: 042
     Dates: start: 20130416, end: 20130416
  8. ACUPAN [Concomitant]
     Dosage: 95 MG, 1X/DAY
     Route: 042
     Dates: start: 20130417, end: 20130417
  9. ACUPAN [Concomitant]
     Dosage: 60 MG, 1X/DAY
     Route: 042
     Dates: start: 20130418, end: 20130418
  10. MORPHINE [Concomitant]
     Dosage: 12 MG PER DAY
     Route: 042
     Dates: start: 20130406, end: 20130406
  11. MORPHINE [Concomitant]
     Dosage: 5 MG, 1X/DAY
     Route: 042
     Dates: start: 20130412, end: 20130412
  12. MORPHINE [Concomitant]
     Dosage: 14 MG, 1X/DAY
     Route: 042
     Dates: start: 20130413, end: 20130413
  13. MORPHINE [Concomitant]
     Dosage: 33 MG, 1X/DAY
     Route: 042
     Dates: start: 20130414, end: 20130414
  14. MORPHINE [Concomitant]
     Dosage: 34 MG, 1X/DAY
     Route: 042
     Dates: start: 20130415, end: 20130415
  15. MORPHINE [Concomitant]
     Dosage: 19 MG, 1X/DAY
     Route: 042
     Dates: start: 20130418, end: 20130418
  16. DEPAKINE [Concomitant]
     Dosage: 935 MG TO 2850 MG DAILY
     Route: 042
     Dates: start: 20130408
  17. AMLODIPINE [Concomitant]
  18. METOPROLOL [Concomitant]
  19. HYDROCHLOROTHIAZIDE/ VALSARTAN [Concomitant]
  20. CRESTOR [Concomitant]
  21. PREVISCAN [Concomitant]
  22. GLUCOPHAGE [Concomitant]
  23. MOLSIDOMINE [Concomitant]
  24. AUGMENTIN [Concomitant]
     Indication: SEPTIC SHOCK
  25. AUGMENTIN [Concomitant]
     Indication: PERITONITIS
  26. GENTAMYCIN [Concomitant]
     Indication: SEPTIC SHOCK
  27. GENTAMYCIN [Concomitant]
     Indication: PERITONITIS

REACTIONS (2)
  - Encephalopathy [Recovered/Resolved]
  - Hypertonia [Recovered/Resolved]
